FAERS Safety Report 21483910 (Version 1)
Quarter: 2022Q4

REPORT INFORMATION
  Report Type: Spontaneous
  Country: RU (occurrence: RU)
  Receive Date: 20221020
  Receipt Date: 20221020
  Transmission Date: 20230112
  Serious: Yes (Other)
  Sender: FDA-Public Use
  Company Number: RU-SA-2022SA420624

PATIENT
  Sex: Female

DRUGS (6)
  1. SOLIQUA 100/33 [Suspect]
     Active Substance: INSULIN GLARGINE\LIXISENATIDE
     Indication: Enterocolitis
     Dosage: 21 U
  2. SOLIQUA 100/33 [Suspect]
     Active Substance: INSULIN GLARGINE\LIXISENATIDE
     Indication: Type 2 diabetes mellitus
  3. SOLIQUA 100/33 [Suspect]
     Active Substance: INSULIN GLARGINE\LIXISENATIDE
     Indication: Proctitis
  4. SOLIQUA 100/33 [Suspect]
     Active Substance: INSULIN GLARGINE\LIXISENATIDE
     Indication: Intestinal obstruction
  5. APIDRA [Concomitant]
     Active Substance: INSULIN GLULISINE
     Dosage: 2-6 IU
  6. INSULIN LISPRO [Concomitant]
     Active Substance: INSULIN LISPRO
     Dosage: 20 IU, TID

REACTIONS (3)
  - Enterocolitis [Unknown]
  - Condition aggravated [Unknown]
  - Product use in unapproved indication [Unknown]
